FAERS Safety Report 5127935-9 (Version None)
Quarter: 2006Q4

REPORT INFORMATION
  Report Type: 
  Country: None (occurrence: None)
  Receive Date: 20061013
  Receipt Date: 20061013
  Transmission Date: 20070319
  Serious: No
  Sender: FDA-Public Use
  Company Number: None

PATIENT
  Age: 63 Year
  Sex: Male

DRUGS (1)
  1. ENALAPRIL MALEATE [Suspect]
     Dates: start: 20060425

REACTIONS (1)
  - ANGIONEUROTIC OEDEMA [None]
